FAERS Safety Report 6030740-2 (Version None)
Quarter: 2009Q1

REPORT INFORMATION
  Report Type: 
  Country: None (occurrence: None)
  Receive Date: 20090106
  Receipt Date: 20081221
  Transmission Date: 20090719
  Serious: Yes (Death)
  Sender: FDA-Public Use
  Company Number: TPG2008A01510

PATIENT
  Age: 57 Year
  Sex: Female

DRUGS (5)
  1. COMPETACT (PIOGLITAZONE HYDROCHLORIDE, METFORMIN HYDROCHLORIDE) [Suspect]
     Indication: TYPE 2 DIABETES MELLITUS
     Dosage: PIOGLITAZONE 30 MG PLUS METFORMIN 1700 MG PER ORAL
     Route: 048
     Dates: start: 20080821, end: 20081112
  2. GLUCOPHAGE [Concomitant]
  3. GLYBURIDE [Concomitant]
  4. ANTIHYPERTENSIVES [Concomitant]
  5. ANALGESICS [Concomitant]

REACTIONS (1)
  - ROAD TRAFFIC ACCIDENT [None]
